FAERS Safety Report 5430944-3 (Version None)
Quarter: 2007Q3

REPORT INFORMATION
  Report Type: 
  Country: None (occurrence: None)
  Receive Date: 20070830
  Receipt Date: 20070824
  Transmission Date: 20080115
  Serious: Yes (Disabling)
  Sender: FDA-Public Use
  Company Number: DE-BRISTOL-MYERS SQUIBB COMPANY-12900593

PATIENT
  Age: 52 Year
  Sex: Male
  Weight: 94 kg

DRUGS (3)
  1. SUSTIVA [Suspect]
     Indication: HIV INFECTION
     Dosage: STOPPED 20-DEC-2001 UNTIL 28-DEC-2001 THEN STOPPED 24-JAN-2002 UNTIL 21-FEB-2002
     Route: 048
     Dates: start: 20010316
  2. COMBIVIR [Suspect]
     Indication: HIV INFECTION
     Dosage: 600 MG/300 MG STOPPED 20-DEC-2001 UNTIL 28-DEC-2001 THEN STOPPED 24-JAN-2002 UNTIL 21-FEB-2002
     Route: 048
     Dates: start: 20010316
  3. TRIZIVIR [Suspect]
     Dates: start: 20020221, end: 20020101

REACTIONS (4)
  - ARTHRALGIA [None]
  - BACK PAIN [None]
  - PAIN IN EXTREMITY [None]
  - TINNITUS [None]
